FAERS Safety Report 6975807-7 (Version None)
Quarter: 2010Q3

REPORT INFORMATION
  Report Type: 
  Country: None (occurrence: None)
  Receive Date: 20100910
  Receipt Date: 20100827
  Transmission Date: 20110219
  Serious: Yes (Hospitalization, Other)
  Sender: FDA-Public Use
  Company Number: US-CELGENEUS-163-21880-10082911

PATIENT
  Sex: Female
  Weight: 51 kg

DRUGS (2)
  1. REVLIMID [Suspect]
     Route: 048
     Dates: start: 20100629
  2. VIDAZA [Suspect]
     Route: 051
     Dates: start: 20100629

REACTIONS (4)
  - DIASTOLIC DYSFUNCTION [None]
  - FEBRILE NEUTROPENIA [None]
  - HYPOTENSION [None]
  - SINUS BRADYCARDIA [None]
